FAERS Safety Report 9620791 (Version 1)
Quarter: 2013Q4

REPORT INFORMATION
  Report Type: Spontaneous
  Country: CH (occurrence: CH)
  Receive Date: 20131015
  Receipt Date: 20131015
  Transmission Date: 20140711
  Serious: Yes (Other)
  Sender: FDA-Public Use
  Company Number: CH-AMGEN-CHESP2013071581

PATIENT
  Age: 76 Year
  Sex: Female

DRUGS (7)
  1. PROLIA [Suspect]
     Indication: OSTEOPOROSIS
     Dosage: 60 MG, UNK
     Route: 058
     Dates: start: 20130315, end: 20130315
  2. DUROGESIC [Suspect]
     Indication: ABDOMINAL PAIN LOWER
     Dosage: UNK
     Route: 062
  3. DUROGESIC [Suspect]
     Indication: GROIN PAIN
  4. LIBRAX /00033301/ [Suspect]
     Indication: PRODUCT USED FOR UNKNOWN INDICATION
     Dosage: UNK
     Route: 048
  5. TEMESTA /00273201/ [Suspect]
     Indication: PRODUCT USED FOR UNKNOWN INDICATION
     Dosage: UNK
     Route: 065
  6. TRAMAL [Suspect]
     Indication: PAIN
     Dosage: UNK
     Route: 065
  7. VITAMIN D3 [Concomitant]
     Indication: OSTEOPOROSIS
     Dosage: UNK

REACTIONS (1)
  - Dizziness [Recovered/Resolved]
